FAERS Safety Report 8131043-2 (Version None)
Quarter: 2012Q1

REPORT INFORMATION
  Report Type: 
  Country: None (occurrence: None)
  Receive Date: 20120209
  Receipt Date: 20120209
  Transmission Date: 20120608
  Serious: No
  Sender: FDA-Public Use
  Company Number: None

PATIENT
  Sex: Male

DRUGS (5)
  1. PREDNISONE TAB [Concomitant]
  2. AVONEX [Concomitant]
  3. AMPYRA [Suspect]
     Indication: MULTIPLE SCLEROSIS
     Dosage: AMPYRA 10MG  Q12HOURS ORAL
     Route: 048
     Dates: start: 20110504, end: 20110831
  4. LISINOPRIL AND HYDROCHLOROTHIAZIDE [Concomitant]
  5. AMANTADINE HCL [Concomitant]

REACTIONS (5)
  - DRUG INEFFECTIVE [None]
  - HEAD TITUBATION [None]
  - GAIT DISTURBANCE [None]
  - FATIGUE [None]
  - TREMOR [None]
